FAERS Safety Report 23039421 (Version 2)
Quarter: 2025Q1

REPORT INFORMATION
  Report Type: Report from Study
  Country: BR (occurrence: BR)
  Receive Date: 20231006
  Receipt Date: 20250110
  Transmission Date: 20250409
  Serious: Yes (Other)
  Sender: NOVARTIS
  Company Number: BR-002147023-NVSC2023BR214615

PATIENT
  Sex: Male

DRUGS (3)
  1. ELTROMBOPAG OLAMINE [Suspect]
     Active Substance: ELTROMBOPAG OLAMINE
     Indication: Immune thrombocytopenia
     Dosage: 50 MG, QD
     Route: 065
     Dates: start: 202307
  2. CYCLOSPORINE [Suspect]
     Active Substance: CYCLOSPORINE
     Indication: Immune thrombocytopenia
     Dosage: 150 MG, QD
     Route: 065
     Dates: start: 202307
  3. VINCRISTINE [Suspect]
     Active Substance: VINCRISTINE
     Indication: Immune thrombocytopenia
     Dosage: 2 MG, QD
     Route: 065
     Dates: start: 202307

REACTIONS (3)
  - Haemorrhage [Unknown]
  - Platelet count decreased [Unknown]
  - Product use in unapproved indication [Unknown]

NARRATIVE: CASE EVENT DATE: 20230901
